FAERS Safety Report 9378351 (Version 2)
Quarter: 2013Q3

REPORT INFORMATION
  Report Type: Spontaneous
  Country: CA (occurrence: CA)
  Receive Date: 20130701
  Receipt Date: 20130711
  Transmission Date: 20140515
  Serious: Yes (Hospitalization)
  Sender: FDA-Public Use
  Company Number: CA-PFIZER INC-2013189742

PATIENT
  Age: 39 Year
  Sex: Male

DRUGS (3)
  1. BENEFIX [Suspect]
     Indication: FACTOR IX DEFICIENCY
     Dosage: 4000 IU, WEEKLY
     Route: 042
  2. PERCOCET [Concomitant]
     Dosage: UNK
  3. TYLENOL [Concomitant]
     Dosage: UNK

REACTIONS (1)
  - Convulsion [Recovered/Resolved]
